FAERS Safety Report 11394842 (Version 1)
Quarter: 2015Q3

REPORT INFORMATION
  Report Type: Spontaneous
  Country: US (occurrence: US)
  Receive Date: 20150819
  Receipt Date: 20150819
  Transmission Date: 20151125
  Serious: Yes (Hospitalization)
  Sender: FDA-Public Use
  Company Number: US-SA-2015SA121426

PATIENT
  Age: 73 Year
  Sex: Male
  Weight: 94 kg

DRUGS (3)
  1. PLAVIX [Suspect]
     Active Substance: CLOPIDOGREL BISULFATE
     Indication: BLOOD DISORDER
     Route: 065
     Dates: start: 201502, end: 201506
  2. REVATIO [Suspect]
     Active Substance: SILDENAFIL CITRATE
     Indication: BLOOD DISORDER
     Route: 048
     Dates: start: 201502
  3. REVATIO [Suspect]
     Active Substance: SILDENAFIL CITRATE
     Indication: BLOOD DISORDER
     Route: 048

REACTIONS (3)
  - Myocardial infarction [Unknown]
  - Blood disorder [Recovering/Resolving]
  - Epistaxis [Recovered/Resolved]

NARRATIVE: CASE EVENT DATE: 2014
